FAERS Safety Report 15764510 (Version 3)
Quarter: 2019Q1

REPORT INFORMATION
  Report Type: Report from Study
  Country: CN (occurrence: CN)
  Receive Date: 20181227
  Receipt Date: 20190127
  Transmission Date: 20190417
  Serious: Yes (Other)
  Sender: FDA-Public Use
  Company Number: CN-ROCHE-2234330

PATIENT

DRUGS (2)
  1. BEVACIZUMAB. [Suspect]
     Active Substance: BEVACIZUMAB
     Indication: LUNG NEOPLASM MALIGNANT
     Route: 038
  2. CISPLATIN. [Suspect]
     Active Substance: CISPLATIN
     Indication: LUNG NEOPLASM MALIGNANT
     Route: 038

REACTIONS (7)
  - Haemorrhage [Unknown]
  - Hypertension [Unknown]
  - Diarrhoea [Unknown]
  - Vomiting [Unknown]
  - Proteinuria [Unknown]
  - Nausea [Unknown]
  - Granulocytopenia [Unknown]
